FAERS Safety Report 8822769 (Version 2)
Quarter: 2012Q4

REPORT INFORMATION
  Report Type: 
  Country: US (occurrence: US)
  Receive Date: 20121003
  Receipt Date: 20121031
  Transmission Date: 20130627
  Serious: No
  Sender: FDA-Public Use
  Company Number: US-ASTRAZENECA-2012SE73299

PATIENT
  Age: 55 Year
  Sex: Male
  Weight: 66.7 kg

DRUGS (2)
  1. BRILINTA [Suspect]
     Indication: STENT PLACEMENT
     Route: 048
  2. BRILINTA [Suspect]
     Indication: CORONARY ARTERY DISEASE
     Route: 048

REACTIONS (1)
  - Pruritus generalised [Recovered/Resolved]
